FAERS Safety Report 21747159 (Version 1)
Quarter: 2022Q4

REPORT INFORMATION
  Report Type: Spontaneous
  Country: MY (occurrence: MY)
  Receive Date: 20221219
  Receipt Date: 20221219
  Transmission Date: 20230113
  Serious: Yes (Other)
  Sender: FDA-Public Use
  Company Number: MY-002147023-NVSC2022MY289798

PATIENT

DRUGS (1)
  1. VOLTAREN [Suspect]
     Active Substance: DICLOFENAC SODIUM
     Indication: Gout
     Dosage: 50 MG
     Route: 048

REACTIONS (4)
  - Renal impairment [Unknown]
  - Dyspnoea [Unknown]
  - Peripheral swelling [Unknown]
  - Asthenia [Unknown]
